FAERS Safety Report 5566925-9 (Version None)
Quarter: 2007Q4

REPORT INFORMATION
  Report Type: 
  Country: None (occurrence: None)
  Receive Date: 20071219
  Receipt Date: 20070309
  Transmission Date: 20080405
  Serious: Yes (Disabling)
  Sender: FDA-Public Use
  Company Number: US-BRISTOL-MYERS SQUIBB COMPANY-13708086

PATIENT
  Age: 83 Year
  Sex: Female

DRUGS (1)
  1. PRAVACHOL [Suspect]

REACTIONS (2)
  - ASTHENIA [None]
  - MYALGIA [None]
